FAERS Safety Report 4512321-2 (Version None)
Quarter: 2004Q4

REPORT INFORMATION
  Report Type: 
  Country: None (occurrence: None)
  Receive Date: 20041129
  Receipt Date: 20041117
  Transmission Date: 20050328
  Serious: Yes (Other)
  Sender: FDA-Public Use
  Company Number: JP-GLAXOSMITHKLINE-B0357467A

PATIENT

DRUGS (2)
  1. ZANTAC [Suspect]
     Dosage: 200ML PER DAY
     Route: 042
  2. MORPHINE [Concomitant]
     Route: 065

REACTIONS (1)
  - CONVULSION [None]
